FAERS Safety Report 12012935 (Version 1)
Quarter: 2016Q1

REPORT INFORMATION
  Report Type: Report from Study
  Country: US (occurrence: US)
  Receive Date: 20160205
  Receipt Date: 20160205
  Transmission Date: 20160526
  Serious: Yes (Death)
  Sender: FDA-Public Use
  Company Number: US-PFIZER INC-2015395831

PATIENT
  Age: 52 Year
  Sex: Female

DRUGS (2)
  1. IRINOTECAN HCL [Suspect]
     Active Substance: IRINOTECAN HYDROCHLORIDE
     Indication: SMALL CELL LUNG CANCER EXTENSIVE STAGE
     Dosage: 150 MG/M2, CYCLIC (DAY 1) (3 CYCLES EVERY 21 DAYS)
  2. BENDAMUSTINE [Suspect]
     Active Substance: BENDAMUSTINE
     Indication: SMALL CELL LUNG CANCER EXTENSIVE STAGE
     Dosage: 100-120 MG/M2 (DAY 1, 2), CYCLIC (3 CYCLES EVERY 21 DAYS)

REACTIONS (2)
  - Hyponatraemia [Fatal]
  - Metabolic encephalopathy [Fatal]
